FAERS Safety Report 16789171 (Version 5)
Quarter: 2019Q4

REPORT INFORMATION
  Report Type: Spontaneous
  Country: CU (occurrence: CU)
  Receive Date: 20190910
  Receipt Date: 20191227
  Transmission Date: 20200122
  Serious: Yes (Other)
  Sender: FDA-Public Use
  Company Number: CU-ROCHE-2403497

PATIENT
  Sex: Male
  Weight: 116 kg

DRUGS (12)
  1. RISPERIDONE. [Concomitant]
     Active Substance: RISPERIDONE
     Dosage: 26 DROPA
     Route: 048
     Dates: start: 2017
  2. ENALAPRIL [Concomitant]
     Active Substance: ENALAPRIL
     Dosage: 1 TABLET
     Route: 048
     Dates: start: 2016
  3. ATENOLOL. [Concomitant]
     Active Substance: ATENOLOL
     Dosage: 1/4 TABLET
     Route: 048
     Dates: start: 2018
  4. CLONAZEPAN [Concomitant]
     Active Substance: CLONAZEPAM
     Indication: EPILEPSY
     Dosage: 2 TABLETS
     Route: 048
     Dates: start: 2016
  5. HEMLIBRA [Suspect]
     Active Substance: EMICIZUMAB-KXWH
     Route: 065
  6. HYDROCHLOROTHIAZIDE. [Concomitant]
     Active Substance: HYDROCHLOROTHIAZIDE
     Dosage: 1 TABLETS
     Route: 048
     Dates: start: 2017
  7. HEMLIBRA [Suspect]
     Active Substance: EMICIZUMAB-KXWH
     Indication: FACTOR VIII DEFICIENCY
     Route: 058
     Dates: start: 20190724, end: 20190726
  8. HEMLIBRA [Suspect]
     Active Substance: EMICIZUMAB-KXWH
     Indication: PROPHYLAXIS
     Route: 058
     Dates: start: 20190829, end: 20190831
  9. HEMLIBRA [Suspect]
     Active Substance: EMICIZUMAB-KXWH
     Route: 058
     Dates: start: 20191102, end: 20191105
  10. FOLIC ACID. [Concomitant]
     Active Substance: FOLIC ACID
     Dosage: 1 TABLET
     Route: 048
     Dates: start: 2010
  11. CARBAMAZEPINE. [Concomitant]
     Active Substance: CARBAMAZEPINE
     Indication: EPILEPSY
     Dosage: 2 TABLETS
     Route: 048
     Dates: start: 201811
  12. LEVETIRACETAM. [Concomitant]
     Active Substance: LEVETIRACETAM
     Indication: EPILEPSY
     Dosage: 2 TABLETS
     Route: 048
     Dates: start: 2016

REACTIONS (4)
  - Haemarthrosis [Not Recovered/Not Resolved]
  - Weight increased [Unknown]
  - Intentional product use issue [Unknown]
  - Off label use [Unknown]
